FAERS Safety Report 7267500-0 (Version None)
Quarter: 2011Q1

REPORT INFORMATION
  Report Type: 
  Country: None (occurrence: None)
  Receive Date: 20110201
  Receipt Date: 20110118
  Transmission Date: 20110831
  Serious: Yes (Death, Life-Threatening, Hospitalization, Other)
  Sender: FDA-Public Use
  Company Number: US-CELGENEUS-163-21880-10123283

PATIENT
  Sex: Male
  Weight: 78.996 kg

DRUGS (29)
  1. ASPIRIN [Concomitant]
     Indication: ANTICOAGULANT THERAPY
     Route: 048
     Dates: start: 20100818
  2. AMBIEN [Concomitant]
     Route: 048
     Dates: start: 20060101, end: 20101213
  3. METFORMIN HCL [Concomitant]
     Route: 048
     Dates: start: 20050101
  4. METOPROLOL [Concomitant]
     Indication: BLOOD PRESSURE
     Route: 048
     Dates: start: 20050701, end: 20101203
  5. ZOMETA [Concomitant]
     Route: 051
  6. CARFILZOMIB [Suspect]
     Route: 065
     Dates: start: 20100826, end: 20100903
  7. DEXAMETHASONE [Suspect]
     Dates: end: 20100909
  8. GLIPIZIDE [Concomitant]
     Route: 048
     Dates: start: 20070101
  9. KLOR-CON [Concomitant]
     Indication: SUPPLEMENTATION THERAPY
     Route: 048
     Dates: start: 20101014
  10. LASIX [Concomitant]
     Route: 048
     Dates: start: 20100921
  11. REVLIMID [Suspect]
     Indication: MULTIPLE MYELOMA
     Route: 048
     Dates: start: 20100819, end: 20101104
  12. ASPIRIN [Concomitant]
     Indication: ANTIPLATELET THERAPY
  13. MIRAPEX [Concomitant]
     Indication: PARKINSON'S DISEASE
     Route: 048
     Dates: start: 20050101
  14. ATIVAN [Concomitant]
     Indication: ANXIETY DISORDER
     Route: 048
     Dates: start: 20100830
  15. IMODIUM [Concomitant]
     Route: 048
     Dates: start: 20100819
  16. PROCRIT [Concomitant]
  17. CIPROFLOXACIN [Concomitant]
     Route: 048
     Dates: start: 20100818
  18. LIPITOR [Concomitant]
     Route: 048
     Dates: start: 20100401
  19. NYSTATIN [Concomitant]
     Route: 048
     Dates: start: 20101029, end: 20101203
  20. OMEPRAZOLE [Concomitant]
     Route: 048
     Dates: start: 20100820
  21. PROCRIT [Concomitant]
     Route: 058
     Dates: start: 20100903
  22. SANDOSTATIN [Concomitant]
     Route: 030
     Dates: start: 20100910
  23. CARFILZOMIB [Suspect]
     Indication: MULTIPLE MYELOMA
     Route: 065
     Dates: start: 20100819, end: 20100820
  24. MULTI-VITAMINS [Concomitant]
     Indication: SUPPLEMENTATION THERAPY
     Route: 048
     Dates: start: 20050101, end: 20101203
  25. DEXAMETHASONE [Suspect]
     Indication: MULTIPLE MYELOMA
     Route: 065
     Dates: start: 20100819
  26. FERROUS SULFATE TAB [Concomitant]
     Indication: SUPPLEMENTATION THERAPY
     Route: 048
     Dates: start: 20040101
  27. LYRICA [Concomitant]
     Route: 048
     Dates: start: 20060101
  28. SLO-MAG [Concomitant]
     Indication: SUPPLEMENTATION THERAPY
     Route: 048
     Dates: start: 20101014
  29. VALACYCLOVIR [Concomitant]
     Indication: ANTIVIRAL PROPHYLAXIS
     Route: 048
     Dates: start: 20100818

REACTIONS (2)
  - MULTIPLE MYELOMA [None]
  - SYNCOPE [None]
